FAERS Safety Report 8533407-1 (Version None)
Quarter: 2012Q3

REPORT INFORMATION
  Report Type: 
  Country: None (occurrence: None)
  Receive Date: 20120724
  Receipt Date: 20120718
  Transmission Date: 20120928
  Serious: Yes (Disabling, Other)
  Sender: FDA-Public Use
  Company Number: PHHY2012CA063074

PATIENT
  Age: 54 Year
  Sex: Female
  Weight: 160 kg

DRUGS (10)
  1. LISINOPRIL [Suspect]
     Route: 048
  2. CLONAZEPAM [Concomitant]
  3. NOVO-CYCLOPRINE [Concomitant]
  4. HISTANTIL [Concomitant]
  5. DIOVAN [Suspect]
  6. AMLODIPINE [Suspect]
     Dosage: 5 MG, UNK
  7. PERINDOPRIL ERBUMINE [Suspect]
     Route: 048
  8. HYDROCHLOROTHIAZIDE [Suspect]
  9. LYRICA [Concomitant]
  10. RATIO-EMTEC [Concomitant]

REACTIONS (10)
  - ORAL FUNGAL INFECTION [None]
  - GASTROINTESTINAL PAIN [None]
  - DIZZINESS [None]
  - OEDEMA PERIPHERAL [None]
  - FEELING HOT [None]
  - TONGUE ULCERATION [None]
  - GAIT DISTURBANCE [None]
  - EYE DISORDER [None]
  - MOOD ALTERED [None]
  - FATIGUE [None]
